FAERS Safety Report 19818563 (Version 1)
Quarter: 2021Q3

REPORT INFORMATION
  Report Type: Spontaneous
  Country: CA (occurrence: CA)
  Receive Date: 20210912
  Receipt Date: 20210912
  Transmission Date: 20211014
  Serious: Yes (Hospitalization)
  Sender: FDA-Public Use
  Company Number: CA-TEVA-2021-CA-1951024

PATIENT
  Age: 48 Year
  Sex: Female

DRUGS (1)
  1. CISPLATIN INJECTION [Suspect]
     Active Substance: CISPLATIN
     Route: 065

REACTIONS (4)
  - Pyrexia [Unknown]
  - Nausea [Unknown]
  - Rash [Unknown]
  - Urticaria [Unknown]
